FAERS Safety Report 17231164 (Version 5)
Quarter: 2020Q3

REPORT INFORMATION
  Report Type: Spontaneous
  Country: US (occurrence: US)
  Receive Date: 20200103
  Receipt Date: 20200811
  Transmission Date: 20201102
  Serious: No
  Sender: FDA-Public Use
  Company Number: US-PFIZER INC-2019560265

PATIENT
  Age: 68 Year
  Sex: Male
  Weight: 73.48 kg

DRUGS (4)
  1. SILDENAFIL CITRATE. [Suspect]
     Active Substance: SILDENAFIL CITRATE
     Dosage: 5 DF (5 TABLETS)
  2. SILDENAFIL CITRATE. [Suspect]
     Active Substance: SILDENAFIL CITRATE
     Indication: OXYGEN CONSUMPTION INCREASED
     Dosage: 4 DF, (4 TABLETS )
  3. SILDENAFIL CITRATE. [Suspect]
     Active Substance: SILDENAFIL CITRATE
     Dosage: 100 MG, DAILY
  4. SILDENAFIL CITRATE. [Suspect]
     Active Substance: SILDENAFIL CITRATE
     Dosage: UNK UNK, 3X/DAY

REACTIONS (4)
  - Drug ineffective for unapproved indication [Unknown]
  - Product use issue [Unknown]
  - Depression [Unknown]
  - Off label use [Unknown]
